FAERS Safety Report 25614901 (Version 4)
Quarter: 2025Q4

REPORT INFORMATION
  Report Type: Spontaneous
  Country: JP (occurrence: JP)
  Receive Date: 20250729
  Receipt Date: 20251006
  Transmission Date: 20260117
  Serious: Yes (Other)
  Sender: GALDERMA
  Company Number: JP-GALDERMA-JP2025003441

PATIENT

DRUGS (8)
  1. NEMOLIZUMAB [Suspect]
     Active Substance: NEMOLIZUMAB
     Indication: Dermatitis atopic
     Dosage: 60 MILLIGRAM EVERY 4 WEEKS
     Route: 058
     Dates: start: 20250115, end: 20250115
  2. NEMOLIZUMAB [Suspect]
     Active Substance: NEMOLIZUMAB
     Dosage: 60 MILLIGRAM EVERY 4 WEEKS
     Route: 058
     Dates: start: 20250212, end: 20250212
  3. BILASTINE [Concomitant]
     Active Substance: BILASTINE
     Indication: Dermatitis atopic
     Dosage: 20 MILLIGRAM
     Route: 048
     Dates: start: 20241127
  4. Heparinoid [Concomitant]
     Indication: Dermatitis atopic
     Dosage: 10 GRAM
     Route: 061
     Dates: start: 20241127
  5. BETAMETHASONE DIPROPIONATE [Concomitant]
     Active Substance: BETAMETHASONE DIPROPIONATE
     Indication: Dermatitis atopic
     Dosage: 2 GRAM
     Route: 061
     Dates: start: 20241127
  6. Myser [Concomitant]
     Indication: Dermatitis atopic
     Dosage: 2 GRAM
     Route: 061
     Dates: start: 20241127
  7. DELGOCITINIB [Concomitant]
     Active Substance: DELGOCITINIB
     Indication: Dermatitis atopic
     Dosage: 2 GRAM
     Route: 061
     Dates: start: 20241127
  8. RUPAFIN [Concomitant]
     Active Substance: RUPATADINE FUMARATE
     Indication: Dermatitis atopic
     Dosage: 10 MILLIGRAM
     Route: 048
     Dates: start: 20230605

REACTIONS (1)
  - Interstitial lung disease [Recovered/Resolved]

NARRATIVE: CASE EVENT DATE: 20250213
